FAERS Safety Report 4682357-X (Version None)
Quarter: 2005Q2

REPORT INFORMATION
  Report Type: 
  Country: None (occurrence: None)
  Receive Date: 20050602
  Receipt Date: 20050602
  Transmission Date: 20051028
  Serious: Yes (Other)
  Sender: FDA-Public Use
  Company Number: None

PATIENT
  Sex: Female
  Weight: 46.7205 kg

DRUGS (2)
  1. VERSED [Suspect]
     Indication: SEDATION
     Dosage: VERSED 12 MG IV
     Route: 042
  2. FENTANYL [Suspect]
     Indication: DISCOMFORT
     Dosage: FENTANYL 200 MG IV
     Route: 042

REACTIONS (2)
  - PRURITUS [None]
  - RASH ERYTHEMATOUS [None]
